FAERS Safety Report 12939695 (Version 2)
Quarter: 2016Q4

REPORT INFORMATION
  Report Type: Spontaneous
  Country: SI (occurrence: SI)
  Receive Date: 20161114
  Receipt Date: 20161122
  Transmission Date: 20170207
  Serious: Yes (Life-Threatening)
  Sender: FDA-Public Use
  Company Number: SI-BRACCO-000043

PATIENT
  Age: 48 Year
  Sex: Female

DRUGS (1)
  1. IOPAMIRO [Suspect]
     Active Substance: IOPAMIDOL
     Indication: ANGIOGRAM
     Route: 042
     Dates: start: 20161108, end: 20161108

REACTIONS (5)
  - Respiratory arrest [Unknown]
  - Vomiting [Unknown]
  - Cyanosis [Unknown]
  - Cardiac failure [Unknown]
  - Nausea [Unknown]

NARRATIVE: CASE EVENT DATE: 20161108
